FAERS Safety Report 7896128-4 (Version None)
Quarter: 2011Q4

REPORT INFORMATION
  Report Type: 
  Country: None (occurrence: None)
  Receive Date: 20111106
  Receipt Date: 20110906
  Transmission Date: 20120403
  Serious: No
  Sender: FDA-Public Use
  Company Number: US-AMGEN-USASP2011045527

PATIENT
  Age: 52 Year
  Sex: Female

DRUGS (8)
  1. NAPROSYN [Concomitant]
     Dosage: 37.5 MG, UNK
  2. PROGESTERONE [Concomitant]
     Dosage: UNK
  3. FUROSEMIDE [Concomitant]
     Dosage: 20 MG, UNK
  4. ENBREL [Suspect]
     Indication: PRODUCT USED FOR UNKNOWN INDICATION
     Dosage: 50 MG, QWK
  5. FOLIC ACID [Concomitant]
     Dosage: 1 MG, UNK
  6. CYMBALTA [Concomitant]
     Dosage: 30 MG, UNK
  7. IRON [Concomitant]
     Dosage: UNK
  8. LISINOPRIL [Concomitant]
     Dosage: 20 MG, UNK

REACTIONS (4)
  - INJECTION SITE REACTION [None]
  - MUSCULOSKELETAL STIFFNESS [None]
  - SWELLING [None]
  - PAIN [None]
